FAERS Safety Report 5409874-9 (Version None)
Quarter: 2007Q3

REPORT INFORMATION
  Report Type: 
  Country: None (occurrence: None)
  Receive Date: 20070807
  Receipt Date: 20070726
  Transmission Date: 20080115
  Serious: Yes (Other)
  Sender: FDA-Public Use
  Company Number: CHNY2007JP02682

PATIENT
  Age: 36 Year
  Sex: Male

DRUGS (2)
  1. NICOTINE [Suspect]
     Indication: SMOKING CESSATION THERAPY
     Dosage: 21 MG, QD, TRANSDERMAL, 14 MG, QD, TRANSDERMAL
     Route: 062
     Dates: start: 20070701, end: 20070701
  2. NICOTINE [Suspect]
     Indication: SMOKING CESSATION THERAPY
     Dosage: 21 MG, QD, TRANSDERMAL, 14 MG, QD, TRANSDERMAL
     Route: 062
     Dates: start: 20070701

REACTIONS (8)
  - ARTHRALGIA [None]
  - ASTHENIA [None]
  - BLOOD POTASSIUM DECREASED [None]
  - DYSPNOEA [None]
  - ELECTROLYTE IMBALANCE [None]
  - GLUCOSE URINE PRESENT [None]
  - HEADACHE [None]
  - QUADRIPLEGIA [None]
